FAERS Safety Report 20743951 (Version 1)
Quarter: 2022Q2

REPORT INFORMATION
  Report Type: Report from Study
  Country: US (occurrence: US)
  Receive Date: 20220425
  Receipt Date: 20220425
  Transmission Date: 20220721
  Serious: Yes (Other)
  Sender: FDA-Public Use
  Company Number: US-CELGENE-USA-20220100285

PATIENT
  Age: 84 Year
  Sex: Female
  Weight: 69.85 kg

DRUGS (3)
  1. REVLIMID [Suspect]
     Active Substance: LENALIDOMIDE
     Indication: Myelodysplastic syndrome
     Dosage: UNIT DOSE : 10 ?10 MILLIGRAM
     Route: 048
     Dates: start: 20200617
  2. REVLIMID [Suspect]
     Active Substance: LENALIDOMIDE
     Dosage: UNIT DOSE : 5 ?5 MILLIGRAM
     Route: 048
     Dates: start: 202101
  3. REVLIMID [Suspect]
     Active Substance: LENALIDOMIDE
     Dosage: 5MG CAPS- 28/BTL
     Route: 048
     Dates: start: 20200617

REACTIONS (1)
  - Breast disorder [Not Recovered/Not Resolved]

NARRATIVE: CASE EVENT DATE: 20211201
